FAERS Safety Report 7269145-5 (Version None)
Quarter: 2011Q1

REPORT INFORMATION
  Report Type: 
  Country: None (occurrence: None)
  Receive Date: 20110202
  Receipt Date: 20090609
  Transmission Date: 20110831
  Serious: No
  Sender: FDA-Public Use
  Company Number: 2009BI017658

PATIENT
  Sex: Male

DRUGS (1)
  1. TYSABRI [Suspect]
     Indication: MULTIPLE SCLEROSIS
     Route: 042
     Dates: start: 20081126

REACTIONS (9)
  - GASTROOESOPHAGEAL REFLUX DISEASE [None]
  - MUSCLE SPASTICITY [None]
  - ATAXIA [None]
  - HYPOAESTHESIA [None]
  - APHASIA [None]
  - DRUG INEFFECTIVE [None]
  - MULTIPLE SCLEROSIS [None]
  - BALANCE DISORDER [None]
  - MOTOR DYSFUNCTION [None]
